FAERS Safety Report 23914688 (Version 1)
Quarter: 2024Q2

REPORT INFORMATION
  Report Type: Report from Study
  Country: US (occurrence: US)
  Receive Date: 20240529
  Receipt Date: 20240529
  Transmission Date: 20240715
  Serious: Yes (Death, Other)
  Sender: FDA-Public Use
  Company Number: US-PFIZER INC-202400179336

PATIENT
  Sex: Male

DRUGS (6)
  1. CARBOPLATIN [Suspect]
     Active Substance: CARBOPLATIN
     Indication: Germ cell cancer
     Dosage: 700 MG/M2, (5, 4, AND 3 DAYS BEFORE THE INFUSION OF PBSCT)
     Route: 042
  2. ETOPOSIDE [Suspect]
     Active Substance: ETOPOSIDE
     Indication: Germ cell cancer
     Dosage: FOUR CYCLES, INITIAL THERAPY
  3. ETOPOSIDE [Suspect]
     Active Substance: ETOPOSIDE
     Dosage: 750 MG/M2, (5, 4, AND 3 DAYS BEFORE THE INFUSION OF PBSCT)
     Route: 042
  4. CISPLATIN [Suspect]
     Active Substance: CISPLATIN
     Indication: Germ cell cancer
     Dosage: FOUR CYCLES, INITIAL THERAPY
  5. IFOSFAMIDE [Suspect]
     Active Substance: IFOSFAMIDE
     Indication: Germ cell cancer
     Dosage: FOUR CYCLES, INITIAL THERAPY
  6. ETOPOSIDE [Suspect]
     Active Substance: ETOPOSIDE
     Indication: Germ cell cancer
     Dosage: THREE CYCLES, MAINTENANCE THERAPY
     Route: 048

REACTIONS (3)
  - Second primary malignancy [Fatal]
  - Acute myeloid leukaemia [Fatal]
  - Myelodysplastic syndrome [Unknown]
